FAERS Safety Report 6821402-X (Version None)
Quarter: 2010Q3

REPORT INFORMATION
  Report Type: 
  Country: None (occurrence: None)
  Receive Date: 20100707
  Receipt Date: 20080926
  Transmission Date: 20110219
  Serious: No
  Sender: FDA-Public Use
  Company Number: US-PFIZER INC-2008078650

PATIENT
  Sex: Female

DRUGS (2)
  1. ZOLOFT [Suspect]
  2. SERTRALINE HCL [Suspect]

REACTIONS (4)
  - ANXIETY [None]
  - DEPRESSION [None]
  - DRUG INEFFECTIVE [None]
  - PERNICIOUS ANAEMIA [None]
